FAERS Safety Report 13908295 (Version 3)
Quarter: 2017Q4

REPORT INFORMATION
  Report Type: Spontaneous
  Country: JP (occurrence: JP)
  Receive Date: 20170826
  Receipt Date: 20171124
  Transmission Date: 20180320
  Serious: Yes (Death, Life-Threatening)
  Sender: FDA-Public Use
  Company Number: JP-ROCHE-1983133

PATIENT
  Age: 5 Decade
  Sex: Female
  Weight: 57 kg

DRUGS (9)
  1. AVASTIN [Suspect]
     Active Substance: BEVACIZUMAB
     Indication: BREAST CANCER
     Dosage: THREE COURSES
     Route: 041
     Dates: start: 20160916, end: 20160930
  2. OXYCONTIN [Concomitant]
     Active Substance: OXYCODONE HYDROCHLORIDE
     Dosage: 5MG 8 TABLETS?ACCORDING TO THE PHYSICIAN INSTRUCTION
     Route: 048
     Dates: start: 20160905, end: 2016
  3. PACLITAXEL. [Suspect]
     Active Substance: PACLITAXEL
     Indication: BREAST CANCER
     Dosage: DOSE INTERVAL UNCERTAINTY
     Route: 041
     Dates: start: 20160916, end: 20160930
  4. NEXIUM [Concomitant]
     Active Substance: ESOMEPRAZOLE MAGNESIUM
     Route: 048
     Dates: start: 20160905, end: 2016
  5. CELECOX [Concomitant]
     Active Substance: CELECOXIB
     Route: 048
     Dates: start: 20160905, end: 2016
  6. PROMAC (JAPAN) [Concomitant]
     Route: 048
     Dates: start: 20160905, end: 2016
  7. METHYCOBAL [Concomitant]
     Active Substance: METHYLCOBALAMIN
     Route: 048
     Dates: start: 20160905, end: 2016
  8. CALONAL [Concomitant]
     Active Substance: ACETAMINOPHEN
     Route: 048
     Dates: start: 20160905, end: 2016
  9. OXINORM (JAPAN) [Concomitant]
     Active Substance: OXYCODONE HYDROCHLORIDE
     Dosage: 2.5MG/PACKS 6PACK?ACCORDING TO THE PHYSICIAN INSTRUCTION
     Route: 048
     Dates: start: 20160905, end: 2016

REACTIONS (2)
  - Wound haemorrhage [Recovering/Resolving]
  - Breast cancer [Fatal]

NARRATIVE: CASE EVENT DATE: 20161013
